FAERS Safety Report 18884712 (Version 2)
Quarter: 2021Q2

REPORT INFORMATION
  Report Type: Report from Study
  Country: DE (occurrence: DE)
  Receive Date: 20210212
  Receipt Date: 20210630
  Transmission Date: 20210717
  Serious: Yes (Congenital Anomaly, Other)
  Sender: FDA-Public Use
  Company Number: DE-BAYER-2021-059419

PATIENT
  Sex: Female

DRUGS (1)
  1. NAPROXEN SODIUM. [Suspect]
     Active Substance: NAPROXEN SODIUM

REACTIONS (13)
  - Aorta hypoplasia [None]
  - Single umbilical artery [None]
  - Heart disease congenital [None]
  - Ventricular septal defect [None]
  - Congenital choroid plexus cyst [None]
  - Foetal exposure during pregnancy [None]
  - Tracheo-oesophageal fistula [None]
  - Choanal stenosis [None]
  - Patent ductus arteriosus [None]
  - Coarctation of the aorta [None]
  - Anomaly of external ear congenital [None]
  - Atrial septal defect [None]
  - Oesophageal atresia [None]
